FAERS Safety Report 7677513-2 (Version None)
Quarter: 2011Q3

REPORT INFORMATION
  Report Type: 
  Country: None (occurrence: None)
  Receive Date: 20110811
  Receipt Date: 20110802
  Transmission Date: 20111222
  Serious: Yes (Other)
  Sender: FDA-Public Use
  Company Number: CA-JNJFOC-20110803378

PATIENT
  Sex: Female
  Weight: 62.2 kg

DRUGS (6)
  1. LUTEIN [Concomitant]
     Route: 048
  2. REMICADE [Suspect]
     Indication: RHEUMATOID ARTHRITIS
     Dosage: 28 PREVIOUS INFLIXIMAB INFUSIONS
     Route: 042
     Dates: start: 20070127
  3. VITAMIN D [Concomitant]
     Dosage: TAKEN DURING THE WINTER MONTHS
     Route: 048
  4. FOLIC ACID [Concomitant]
     Route: 048
  5. MULTIPLE VITAMIN [Concomitant]
     Route: 048
  6. METHOTREXATE [Concomitant]
     Route: 048

REACTIONS (2)
  - FALL [None]
  - HUMERUS FRACTURE [None]
